FAERS Safety Report 17036924 (Version 3)
Quarter: 2020Q2

REPORT INFORMATION
  Report Type: Spontaneous
  Country: US (occurrence: US)
  Receive Date: 20191115
  Receipt Date: 20200407
  Transmission Date: 20200713
  Serious: Yes (Hospitalization)
  Sender: FDA-Public Use
  Company Number: US-STRONGBRIDGE BIOPHARMA-2019-STR-000306

PATIENT
  Sex: Female

DRUGS (2)
  1. KEVEYIS [Suspect]
     Active Substance: DICHLORPHENAMIDE
     Indication: FAMILIAL PERIODIC PARALYSIS
     Dosage: 50 MG, BID
     Route: 048
  2. KEVEYIS [Suspect]
     Active Substance: DICHLORPHENAMIDE
     Dosage: 75 MG, BID
     Route: 048

REACTIONS (6)
  - Muscular weakness [Unknown]
  - Condition aggravated [Recovered/Resolved]
  - Paralysis [Recovered/Resolved]
  - Chest pain [Recovered/Resolved]
  - Wrong technique in product usage process [Unknown]
  - Muscular weakness [Recovered/Resolved]
